FAERS Safety Report 16702489 (Version 1)
Quarter: 2019Q3

REPORT INFORMATION
  Report Type: Spontaneous
  Country: US (occurrence: US)
  Receive Date: 20190813
  Receipt Date: 20190813
  Transmission Date: 20191004
  Serious: Yes (Life-Threatening, Hospitalization)
  Sender: FDA-Public Use
  Company Number: None

PATIENT
  Age: 17 Year
  Sex: Male
  Weight: 99.7 kg

DRUGS (1)
  1. ACCUTANE [Suspect]
     Active Substance: ISOTRETINOIN
     Indication: ACNE
     Route: 048
     Dates: end: 20190730

REACTIONS (4)
  - Haematochezia [None]
  - Rectal haemorrhage [None]
  - Large intestinal ulcer [None]
  - Lymphoid tissue hyperplasia [None]

NARRATIVE: CASE EVENT DATE: 20190731
